FAERS Safety Report 10024771 (Version 2)
Quarter: 2014Q2

REPORT INFORMATION
  Report Type: Spontaneous
  Country: US (occurrence: US)
  Receive Date: 20140320
  Receipt Date: 20140513
  Transmission Date: 20141212
  Serious: Yes (Death)
  Sender: FDA-Public Use
  Company Number: US-BAYER-2014-039990

PATIENT
  Age: 77 Year
  Sex: Male
  Weight: 67 kg

DRUGS (2)
  1. XOFIGO [Suspect]
     Indication: HORMONE-REFRACTORY PROSTATE CANCER
     Dosage: TOTAL DAILY DOSE: 50KBQ/KG;DOSE REGIMEN: EVERY 4 WEEKS; ROUTE: INJECTION
     Dates: start: 20140124, end: 20140221
  2. XOFIGO [Suspect]
     Indication: METASTASES TO BONE

REACTIONS (1)
  - Death [Fatal]
